FAERS Safety Report 25817972 (Version 1)
Quarter: 2025Q3

REPORT INFORMATION
  Report Type: Report from Study
  Country: US (occurrence: US)
  Receive Date: 20250918
  Receipt Date: 20250918
  Transmission Date: 20251020
  Serious: Yes (Other)
  Sender: UCB
  Company Number: US-UCBSA-2025056710

PATIENT
  Age: 43 Year
  Sex: Female

DRUGS (2)
  1. BIMEKIZUMAB [Suspect]
     Active Substance: BIMEKIZUMAB
     Indication: Psoriatic arthropathy
     Dosage: 320 MILLIGRAM, EV 8 WEEKS
  2. BIMEKIZUMAB [Suspect]
     Active Substance: BIMEKIZUMAB
     Indication: Psoriasis

REACTIONS (2)
  - Hernia repair [Recovered/Resolved]
  - Hernia [Unknown]

NARRATIVE: CASE EVENT DATE: 20250811
